FAERS Safety Report 5723343-8 (Version None)
Quarter: 2008Q2

REPORT INFORMATION
  Report Type: 
  Country: None (occurrence: None)
  Receive Date: 20080429
  Receipt Date: 20080429
  Transmission Date: 20081010
  Serious: Yes (Hospitalization)
  Sender: FDA-Public Use
  Company Number: None

PATIENT
  Sex: Female
  Weight: 51.2565 kg

DRUGS (15)
  1. LOVENOX [Suspect]
     Indication: ANTICOAGULANT THERAPY
     Dosage: 1 INJECTION TWICE A DAY SQ
     Route: 058
     Dates: start: 20080414, end: 20080425
  2. LOVENOX [Suspect]
     Indication: DEEP VEIN THROMBOSIS
     Dosage: 1 INJECTION TWICE A DAY SQ
     Route: 058
     Dates: start: 20080414, end: 20080425
  3. WARFARIN SODIUM [Concomitant]
  4. ASPIRIN [Concomitant]
  5. ATENOLOL [Concomitant]
  6. CALCIUM [Concomitant]
  7. FOLIC ACID [Concomitant]
  8. FORSAMAX [Concomitant]
  9. ISOSORBIDE MONONITRATE [Concomitant]
  10. METHOTREXATE [Concomitant]
  11. M.V.I. [Concomitant]
  12. PLAVIX [Concomitant]
  13. PREDNISONE TAB [Concomitant]
  14. SEROQUEL [Concomitant]
  15. ZOCOR [Concomitant]

REACTIONS (3)
  - ASTHENIA [None]
  - NAUSEA [None]
  - TREMOR [None]
